FAERS Safety Report 14277875 (Version 1)
Quarter: 2017Q4

REPORT INFORMATION
  Report Type: Spontaneous
  Country: ES (occurrence: ES)
  Receive Date: 20171211
  Receipt Date: 20171211
  Transmission Date: 20180321
  Serious: Yes (Other)
  Sender: FDA-Public Use
  Company Number: ES-OTSUKA-19471150

PATIENT
  Age: 39 Year
  Sex: Female

DRUGS (4)
  1. LORMETAZEPAM [Concomitant]
     Active Substance: LORMETAZEPAM
     Indication: INSOMNIA
     Dosage: 2 MG, QD
     Route: 048
  2. MIDAZOLAM [Concomitant]
     Active Substance: MIDAZOLAM HYDROCHLORIDE
     Dosage: 7.5 MG, QD
     Route: 048
  3. ABILIFY [Suspect]
     Active Substance: ARIPIPRAZOLE
     Indication: SCHIZOPHRENIA
     Dosage: DOSE REDUCED:15 MG/DAILY  1AUG13-28OCT13-30MG  28OCT13-04NOV13-15MG
     Route: 048
     Dates: start: 20130801, end: 20131104
  4. LORAZEPAM. [Concomitant]
     Active Substance: LORAZEPAM
     Indication: ANXIETY
     Dosage: 1 MG, QD
     Route: 048

REACTIONS (2)
  - Erythema [Unknown]
  - Photosensitivity reaction [Unknown]
